FAERS Safety Report 7620879-X (Version None)
Quarter: 2011Q3

REPORT INFORMATION
  Report Type: 
  Country: None (occurrence: None)
  Receive Date: 20110719
  Receipt Date: 20110711
  Transmission Date: 20111222
  Serious: Yes (Other)
  Sender: FDA-Public Use
  Company Number: IT-GENZYME-FLUD-1001297

PATIENT

DRUGS (18)
  1. FLUDARA [Suspect]
     Dosage: 30 MG/M2, UNK
     Route: 042
  2. CYCLOPHOSPHAMIDE [Suspect]
     Indication: CHRONIC LYMPHOCYTIC LEUKAEMIA
     Dosage: 250 MG/M2, QDX3
     Route: 065
  3. LENALIDOMIDE [Suspect]
     Indication: CHRONIC LYMPHOCYTIC LEUKAEMIA
     Dosage: 2.5 MG, QD ON DAYS 1-14
     Route: 065
  4. ALLOPURINOL [Concomitant]
     Indication: PROPHYLAXIS
     Dosage: 300 MG, QD
     Route: 065
  5. FLUDARA [Suspect]
     Dosage: 30 MG/M2, UNK
     Route: 042
  6. ENOXAPARIN [Concomitant]
     Indication: THROMBOSIS PROPHYLAXIS
     Dosage: 4000 U, QD
     Route: 058
  7. FLUDARA [Suspect]
     Indication: CHRONIC LYMPHOCYTIC LEUKAEMIA
     Dosage: 30 MG/M2, UNK
     Route: 042
  8. CYCLOPHOSPHAMIDE [Suspect]
     Dosage: 250 MG/M2, QDX3
     Route: 065
  9. LENALIDOMIDE [Suspect]
     Dosage: 10 MG, QD ON DAYS 1-14
     Route: 065
  10. FLUDARA [Suspect]
     Dosage: 30 MG/M2, UNK
     Route: 042
  11. CYCLOPHOSPHAMIDE [Suspect]
     Dosage: 250 MG/M2, QDX3
     Route: 065
  12. CYCLOPHOSPHAMIDE [Suspect]
     Dosage: 250 MG/M2, QDX3
     Route: 065
  13. NEUPOGEN [Concomitant]
     Indication: PROPHYLAXIS
     Dosage: UNK, DAYS 6-11
     Route: 065
  14. CYCLOPHOSPHAMIDE [Suspect]
     Dosage: 250 MG/M2, QDX3
     Route: 065
  15. LENALIDOMIDE [Suspect]
     Dosage: 5 MG, QD ON DAYS 1-14
  16. CYCLOPHOSPHAMIDE [Suspect]
     Dosage: 250 MG/M2, QDX3
     Route: 065
  17. FLUDARA [Suspect]
     Dosage: 30 MG/M2, UNK
     Route: 042
  18. FLUDARA [Suspect]
     Dosage: 30 MG/M2, UNK
     Route: 042

REACTIONS (1)
  - HEPATOTOXICITY [None]
